FAERS Safety Report 24566895 (Version 1)
Quarter: 2024Q4

REPORT INFORMATION
  Report Type: Spontaneous
  Country: CN (occurrence: CN)
  Receive Date: 20241030
  Receipt Date: 20241030
  Transmission Date: 20250114
  Serious: Yes (Hospitalization, Other)
  Sender: NOVARTIS
  Company Number: CN-002147023-NVSC2024CN207982

PATIENT
  Age: 79 Year
  Sex: Female
  Weight: 55 kg

DRUGS (1)
  1. HYDROCHLOROTHIAZIDE\VALSARTAN [Suspect]
     Active Substance: HYDROCHLOROTHIAZIDE\VALSARTAN
     Indication: Blood pressure increased
     Dosage: 80 MG, QD
     Route: 048
     Dates: start: 20240415, end: 20241016

REACTIONS (4)
  - Hypokalaemia [Recovered/Resolved]
  - Chest pain [Unknown]
  - Palpitations [Unknown]
  - Syncope [Unknown]

NARRATIVE: CASE EVENT DATE: 20241015
